FAERS Safety Report 8390560-0 (Version None)
Quarter: 2012Q2

REPORT INFORMATION
  Report Type: 
  Country: None (occurrence: None)
  Receive Date: 20120529
  Receipt Date: 20120517
  Transmission Date: 20120825
  Serious: Yes (Other)
  Sender: FDA-Public Use
  Company Number: US-JNJFOC-20120515329

PATIENT
  Sex: Female

DRUGS (1)
  1. REMICADE [Suspect]
     Indication: GASTROINTESTINAL INFLAMMATION
     Route: 042
     Dates: start: 20110301, end: 20120101

REACTIONS (3)
  - LUNG NEOPLASM MALIGNANT [None]
  - LUNG DISORDER [None]
  - BONE PAIN [None]
